FAERS Safety Report 16757484 (Version 5)
Quarter: 2019Q4

REPORT INFORMATION
  Report Type: Report from Study
  Country: None (occurrence: US)
  Receive Date: 20190830
  Receipt Date: 20191230
  Transmission Date: 20200122
  Serious: Yes (Hospitalization, Other)
  Sender: FDA-Public Use
  Company Number: US-ABBVIE-19K-163-2904709-00

PATIENT
  Age: 33 Year
  Sex: Female
  Weight: 68.1 kg

DRUGS (21)
  1. VITAMIN D [Concomitant]
     Active Substance: VITAMIN D NOS
     Indication: PRODUCT USED FOR UNKNOWN INDICATION
  2. SEROQUEL [Concomitant]
     Active Substance: QUETIAPINE FUMARATE
     Indication: PRODUCT USED FOR UNKNOWN INDICATION
  3. HUMIRA [Suspect]
     Active Substance: ADALIMUMAB
     Indication: RHEUMATOID ARTHRITIS
     Route: 058
     Dates: start: 201809, end: 201903
  4. LEVOTHYROXINE SODIUM. [Concomitant]
     Active Substance: LEVOTHYROXINE SODIUM
     Indication: PRODUCT USED FOR UNKNOWN INDICATION
  5. PREDNISONE. [Concomitant]
     Active Substance: PREDNISONE
     Indication: PRODUCT USED FOR UNKNOWN INDICATION
  6. FOLIC ACID. [Concomitant]
     Active Substance: FOLIC ACID
     Indication: PRODUCT USED FOR UNKNOWN INDICATION
  7. VALACYCLOVIR [Concomitant]
     Active Substance: VALACYCLOVIR HYDROCHLORIDE
     Indication: PRODUCT USED FOR UNKNOWN INDICATION
  8. ONDANSETRON [Concomitant]
     Active Substance: ONDANSETRON
     Indication: PRODUCT USED FOR UNKNOWN INDICATION
  9. ALBUTEROL. [Concomitant]
     Active Substance: ALBUTEROL
     Indication: PRODUCT USED FOR UNKNOWN INDICATION
  10. AMITRIPTYLINE [Concomitant]
     Active Substance: AMITRIPTYLINE
     Indication: PRODUCT USED FOR UNKNOWN INDICATION
  11. TRAMADOL HCL [Concomitant]
     Active Substance: TRAMADOL HYDROCHLORIDE
     Indication: PRODUCT USED FOR UNKNOWN INDICATION
  12. LEVOTHYROXINE. [Concomitant]
     Active Substance: LEVOTHYROXINE
     Indication: HYPOTHYROIDISM
  13. HUMIRA [Suspect]
     Active Substance: ADALIMUMAB
     Route: 058
     Dates: start: 201909
  14. DOC [Concomitant]
     Indication: PRODUCT USED FOR UNKNOWN INDICATION
  15. DIAZEPAM. [Concomitant]
     Active Substance: DIAZEPAM
     Indication: PRODUCT USED FOR UNKNOWN INDICATION
  16. PROAIR HFA [Concomitant]
     Active Substance: ALBUTEROL SULFATE
     Indication: PRODUCT USED FOR UNKNOWN INDICATION
  17. TRAMADOL. [Concomitant]
     Active Substance: TRAMADOL
     Indication: PRODUCT USED FOR UNKNOWN INDICATION
  18. MORPHINE [Concomitant]
     Active Substance: MORPHINE
     Indication: PRODUCT USED FOR UNKNOWN INDICATION
  19. FENTANYL. [Concomitant]
     Active Substance: FENTANYL
     Indication: PRODUCT USED FOR UNKNOWN INDICATION
  20. PRENATAL [Concomitant]
     Active Substance: VITAMINS
     Indication: BLOOD IRON DECREASED
  21. PRENATAL [Concomitant]
     Active Substance: VITAMINS
     Indication: WHITE BLOOD CELL COUNT

REACTIONS (23)
  - Systemic lupus erythematosus [Not Recovered/Not Resolved]
  - Joint swelling [Unknown]
  - Phobia [Unknown]
  - Hepatic cyst [Unknown]
  - Mobility decreased [Recovering/Resolving]
  - Fatigue [Unknown]
  - Productive cough [Unknown]
  - Sputum discoloured [Unknown]
  - Renal cyst [Unknown]
  - Cytopenia [Unknown]
  - Leukopenia [Unknown]
  - Skin discolouration [Recovering/Resolving]
  - Furuncle [Recovering/Resolving]
  - Upper respiratory tract infection [Recovered/Resolved]
  - Ovarian cyst [Unknown]
  - Rash [Recovered/Resolved]
  - Bronchitis [Recovered/Resolved]
  - Breast cyst [Unknown]
  - Joint swelling [Recovering/Resolving]
  - Fatigue [Not Recovered/Not Resolved]
  - Neutropenia [Unknown]
  - Sjogren^s syndrome [Not Recovered/Not Resolved]
  - Pain [Unknown]

NARRATIVE: CASE EVENT DATE: 2019
